FAERS Safety Report 7367499-2 (Version None)
Quarter: 2011Q1

REPORT INFORMATION
  Report Type: 
  Country: None (occurrence: None)
  Receive Date: 20110322
  Receipt Date: 20081001
  Transmission Date: 20110831
  Serious: Yes (Death, Hospitalization)
  Sender: FDA-Public Use
  Company Number: US-BAYER-201039388NA

PATIENT
  Sex: Female
  Weight: 75 kg

DRUGS (54)
  1. HEPARIN [Concomitant]
     Dosage: 22000 IU, UNK
     Route: 042
     Dates: start: 20040116, end: 20040116
  2. MANNITOL [Concomitant]
     Dosage: 37.5 G, CPB
     Dates: start: 20040116, end: 20040116
  3. LIDOCAINE [Concomitant]
     Dosage: UNK
     Route: 042
     Dates: start: 20040116, end: 20040116
  4. PHENYLEPHRINE HCL [Concomitant]
     Dosage: TITRATED
     Route: 042
     Dates: start: 20040116, end: 20040116
  5. TRASYLOL [Suspect]
     Dosage: 200 ML CARDIOPULMONARY PUMP
     Dates: start: 20040116, end: 20040116
  6. DOBUTAMINE [Concomitant]
     Dosage: 6.8-10.5 MCG/KG
     Route: 042
     Dates: start: 20040116, end: 20040116
  7. EPHEDRINE [Concomitant]
     Dosage: 10 MG, UNK
     Route: 042
     Dates: start: 20040116, end: 20040116
  8. VERSED [Concomitant]
     Dosage: 2 MG, UNK
     Route: 042
     Dates: start: 20040116, end: 20040116
  9. SODIUM BICARBONATE [Concomitant]
     Dosage: 50 MEQ CPB
     Dates: start: 20040116, end: 20040116
  10. OMNIPAQUE 140 [Concomitant]
     Indication: CATHETERISATION CARDIAC
     Dosage: 110 ML, UNK
     Dates: start: 20040116, end: 20040116
  11. NORVASC [Concomitant]
     Dosage: 10 MG, UNK
     Route: 048
     Dates: start: 20010101
  12. NITROGLYCERIN [Concomitant]
     Dosage: 0.4 MG, UNK
     Route: 060
     Dates: start: 20030101
  13. PROPOFOL [Concomitant]
     Dosage: 15 ML/HR
     Route: 042
     Dates: start: 20040116, end: 20040116
  14. ETOMIDATE [Concomitant]
     Dosage: 20 MG, UNK
     Route: 042
     Dates: start: 20040116, end: 20040116
  15. FENTANYL [Concomitant]
     Dosage: 15 ML, UNK
     Route: 042
     Dates: start: 20040116, end: 20040116
  16. TRASYLOL [Suspect]
     Dosage: 200 UNK, UNK
     Dates: start: 20040116, end: 20040116
  17. ZITHROMAX [Concomitant]
     Dosage: 500 MG, UNK
     Route: 048
     Dates: start: 20040114
  18. NOREPINEPHRINE BITARTRATE [Concomitant]
     Dosage: 8 MCG/KG/MIN
     Route: 042
     Dates: start: 20040116, end: 20040116
  19. BENADRYL [Concomitant]
     Dosage: UNKNOWN
     Route: 042
     Dates: start: 20040116, end: 20040116
  20. LASIX [Concomitant]
     Dosage: 80 MG, UNK
     Route: 048
     Dates: start: 19980101
  21. BUMEX [Concomitant]
     Dosage: 26.7 MCG/MIN
     Route: 041
     Dates: start: 20040116, end: 20040116
  22. PEPCID [Concomitant]
     Dosage: 20 MG, UNK
     Route: 042
     Dates: start: 20040116, end: 20040116
  23. PREMARIN [Concomitant]
     Dosage: 0.625 MG, UNK
     Dates: start: 19980101
  24. VIOXX [Concomitant]
     Dosage: 12.5 MG, UNK
     Route: 048
     Dates: end: 20040114
  25. ZIAC [Concomitant]
     Dosage: 5/6.25 MG
     Dates: start: 20000101
  26. VALIUM [Concomitant]
     Dosage: 2 MG, UNK
     Route: 042
     Dates: start: 20040113, end: 20040113
  27. INSULIN [Concomitant]
     Dosage: TITRATED
     Route: 042
     Dates: start: 20040115
  28. LASIX [Concomitant]
     Dosage: 100 MG, UNK
     Route: 042
     Dates: start: 20040116, end: 20040116
  29. BUMEX [Concomitant]
     Dosage: PRE-SURGERY
     Dates: start: 20040115
  30. HEPARIN [Concomitant]
     Dosage: 32000 IU, CPB
     Dates: start: 20040116, end: 20040116
  31. MAGNESIUM [Concomitant]
     Dosage: 2 G, CPB
     Dates: start: 20040116, end: 20040116
  32. ASPIRIN [Concomitant]
     Dosage: 325 MG, UNK
     Route: 048
  33. INTEGRILIN [Concomitant]
     Dosage: 2 MCG/KG/MIN
     Route: 042
     Dates: start: 20040113
  34. DEMEROL [Concomitant]
     Dosage: 25 MG, UNK
     Route: 042
     Dates: start: 20040113, end: 20040113
  35. PANCURONIUM BROMIDE [Concomitant]
     Dosage: 5 MG, UNK
     Route: 042
     Dates: start: 20040116, end: 20040116
  36. ANCEF [Concomitant]
     Dosage: 1 G, UNK
     Route: 042
     Dates: start: 20040116, end: 20040116
  37. RED BLOOD CELLS [Concomitant]
     Dosage: 8 UNK, UNK
     Dates: start: 20040116
  38. PRAVACHOL [Concomitant]
     Dosage: 20 MG, UNK
     Route: 048
     Dates: start: 20000101
  39. DUONEB [Concomitant]
     Dosage: UNK UNK, QID INHALER
     Route: 055
  40. MUCOMYST [Concomitant]
     Dosage: PRE-SURGERY
     Dates: start: 20040115
  41. OXYGEN [Concomitant]
     Dosage: UNK
     Dates: start: 20040311
  42. TRASYLOL [Suspect]
     Indication: CORONARY ARTERY BYPASS
     Dosage: 1 ML, INITIAL DOSE
     Route: 042
     Dates: start: 20040116, end: 20040116
  43. NITROGLYCERIN [Concomitant]
     Dosage: 50 MCG/MIN
     Route: 042
     Dates: start: 20040116, end: 20040116
  44. PROTAMINE SULFATE [Concomitant]
     Dosage: 45 ML, UNK
     Route: 042
     Dates: start: 20040116, end: 20040116
  45. EPINEPHRINE [Concomitant]
     Dosage: TITRATED
     Route: 042
     Dates: start: 20040116, end: 20040116
  46. PANCURONIUM BROMIDE [Concomitant]
     Dosage: 5 MG, CPB
     Route: 042
     Dates: start: 20040116, end: 20040116
  47. ROCEPHIN [Concomitant]
     Dosage: 1 G, UNK
     Route: 042
     Dates: start: 20040114
  48. INSULIN [Concomitant]
     Dosage: TITRATED
     Route: 042
     Dates: start: 20040116, end: 20040116
  49. CALCIUM CHLORIDE [Concomitant]
     Dosage: 3 G, UNK
     Route: 042
     Dates: start: 20040116, end: 20040116
  50. PLATELETS [Concomitant]
     Dosage: 2 U, UNK
     Dates: start: 20040116
  51. NOVOLIN 70/30 PREFILLED [Concomitant]
     Dosage: UNK
     Route: 058
     Dates: start: 20000101
  52. ALTACE [Concomitant]
     Dosage: 10 MG, UNK
     Dates: start: 20030101
  53. LOVENOX [Concomitant]
     Dosage: 80 MG, UNK
     Route: 058
  54. SUCCINYLCHOLINE CHLORIDE [Concomitant]
     Dosage: UNK
     Route: 042
     Dates: start: 20040116, end: 20040116

REACTIONS (6)
  - CARDIOMYOPATHY [None]
  - EMOTIONAL DISTRESS [None]
  - RENAL FAILURE [None]
  - CARDIAC FAILURE CHRONIC [None]
  - INJURY [None]
  - PAIN [None]
